FAERS Safety Report 8960698 (Version 1)
Quarter: 2012Q4

REPORT INFORMATION
  Report Type: Spontaneous
  Country: GB (occurrence: None)
  Receive Date: 20121130
  Receipt Date: 20121130
  Transmission Date: 20130627
  Serious: Yes (Hospitalization, Other)
  Sender: FDA-Public Use
  Company Number: 1500896

PATIENT
  Age: 62 Year
  Sex: Male

DRUGS (4)
  1. CYTARABINE [Suspect]
     Indication: ACUTE LEUKEMIA
     Dosage: FLAG/IDA course 2,
     Dates: start: 20111202
  2. FILGRASTIM [Suspect]
     Indication: ACUTE LEUKEMIA
     Dosage: FLAG/IDA course 2,
     Dates: start: 20111202
  3. FLUDARA [Suspect]
     Indication: ACUTE LEUKEMIA
     Dosage: FLAG/IDA, course 2,
     Dates: start: 20111202
  4. IDARUBICIN [Suspect]
     Indication: ACUTE LEUKEMIA
     Dosage: FLAG/IDA course 2,
     Dates: start: 20111202

REACTIONS (2)
  - Neutropenic sepsis [None]
  - Lower respiratory tract infection fungal [None]
